FAERS Safety Report 26068537 (Version 2)
Quarter: 2025Q4

REPORT INFORMATION
  Report Type: Report from Study
  Country: CO (occurrence: CO)
  Receive Date: 20251120
  Receipt Date: 20251203
  Transmission Date: 20260118
  Serious: Yes (Hospitalization, Other)
  Sender: ASTELLAS
  Company Number: CO-ASTELLAS-2025-AER-063693

PATIENT
  Age: 34 Year
  Sex: Female
  Weight: 54 kg

DRUGS (6)
  1. PROGRAF [Suspect]
     Active Substance: TACROLIMUS
     Indication: Renal transplant
     Dosage: A DAILY DOSE OF 7MG, EVERY 24 HOURS
     Route: 048
     Dates: start: 202507, end: 2025
  2. PROGRAF [Suspect]
     Active Substance: TACROLIMUS
     Indication: Renal transplant
     Dosage: CURRENT THERAPY: PROGRAF XL 1MG (1 CAPSULE), A DAILY DOSE OF 1MG, EVERY 24 HOURS.
     Route: 048
     Dates: start: 202507, end: 2025
  3. PROGRAF [Suspect]
     Active Substance: TACROLIMUS
     Dosage: A DAILY DOSE OF 7MG, EVERY 24 HOURS
     Route: 048
     Dates: start: 2025
  4. MYCOPHENOLIC ACID [Concomitant]
     Active Substance: MYCOPHENOLIC ACID
     Indication: Product used for unknown indication
     Route: 065
  5. PREDNISOLONE [Concomitant]
     Active Substance: PREDNISOLONE
     Indication: Product used for unknown indication
     Route: 065
  6. PANTOPRAZOLE [Concomitant]
     Active Substance: PANTOPRAZOLE
     Indication: Product used for unknown indication
     Route: 065

REACTIONS (6)
  - Urinary tract infection [Recovered/Resolved]
  - Bacterial infection [Recovered/Resolved]
  - Burning sensation [Not Recovered/Not Resolved]
  - Alopecia [Unknown]
  - Tremor [Unknown]
  - Immunosuppressant drug level increased [Unknown]

NARRATIVE: CASE EVENT DATE: 20250101
